FAERS Safety Report 8308121-8 (Version None)
Quarter: 2012Q2

REPORT INFORMATION
  Report Type: 
  Country: None (occurrence: None)
  Receive Date: 20120424
  Receipt Date: 20120417
  Transmission Date: 20120825
  Serious: Yes (Hospitalization, Other)
  Sender: FDA-Public Use
  Company Number: AR-ROCHE-1025663

PATIENT
  Sex: Female

DRUGS (5)
  1. LUCENTIS [Suspect]
     Route: 050
     Dates: start: 20110501
  2. LUCENTIS [Suspect]
     Dates: start: 20111101
  3. LUCENTIS [Suspect]
     Route: 050
     Dates: start: 20110601
  4. DIOVAN [Concomitant]
  5. LUCENTIS [Suspect]
     Indication: MACULOPATHY
     Dosage: DOSE OF FOUR TOTAL AMPOULES
     Route: 050
     Dates: start: 20110101

REACTIONS (3)
  - DIARRHOEA [None]
  - OEDEMA PERIPHERAL [None]
  - ARTHRALGIA [None]
